FAERS Safety Report 5016105-0 (Version None)
Quarter: 2006Q2

REPORT INFORMATION
  Report Type: 
  Country: None (occurrence: None)
  Receive Date: 20060414
  Receipt Date: 20060303
  Transmission Date: 20061013
  Serious: No
  Sender: FDA-Public Use
  Company Number: 2006SP001094

PATIENT
  Age: 52 Year

DRUGS (1)
  1. LUNESTA [Suspect]
     Indication: INSOMNIA
     Dosage: 3 MG IX ORAL
     Route: 048
     Dates: start: 20060301, end: 20060301

REACTIONS (2)
  - DECREASED APPETITE [None]
  - DYSGEUSIA [None]
